FAERS Safety Report 8600555-7 (Version None)
Quarter: 2012Q3

REPORT INFORMATION
  Report Type: 
  Country: None (occurrence: None)
  Receive Date: 20120817
  Receipt Date: 20111026
  Transmission Date: 20120928
  Serious: No
  Sender: FDA-Public Use
  Company Number: US-MYLANLABS-2011S1022339

PATIENT
  Age: 74 Year
  Sex: Female

DRUGS (6)
  1. TRAMADOL HCL [Concomitant]
  2. LIDOCAINE [Concomitant]
     Dosage: 2%
  3. GAVISCON [Concomitant]
  4. CLONIDINE [Concomitant]
  5. BENADRYL [Concomitant]
  6. NICARDIPINE HCL [Suspect]
     Indication: BLOOD PRESSURE INCREASED
     Route: 048
     Dates: start: 20111019

REACTIONS (6)
  - WHEEZING [None]
  - HEART RATE INCREASED [None]
  - RASH [None]
  - HEADACHE [None]
  - HYPERHIDROSIS [None]
  - DYSURIA [None]
